FAERS Safety Report 4492393-4 (Version None)
Quarter: 2004Q4

REPORT INFORMATION
  Report Type: 
  Country: None (occurrence: None)
  Receive Date: 20041102
  Receipt Date: 20041102
  Transmission Date: 20050328
  Serious: No
  Sender: FDA-Public Use
  Company Number: None

PATIENT
  Age: 69 Year
  Sex: Male
  Weight: 84.8226 kg

DRUGS (5)
  1. DESYREL [Suspect]
     Indication: INSOMNIA
     Dosage: 75 QHS
     Dates: start: 20031211
  2. LIPITOR [Concomitant]
  3. RELAFEN [Concomitant]
  4. ALTACE [Concomitant]
  5. HYCODAN [Concomitant]

REACTIONS (2)
  - PHARMACEUTICAL PRODUCT COMPLAINT [None]
  - RASH [None]
